FAERS Safety Report 15928639 (Version 1)
Quarter: 2019Q1

REPORT INFORMATION
  Report Type: Spontaneous
  Country: CN (occurrence: CN)
  Receive Date: 20190206
  Receipt Date: 20190206
  Transmission Date: 20190417
  Serious: Yes (Other)
  Sender: FDA-Public Use
  Company Number: CN-ASTRAZENECA-2019SE21052

PATIENT
  Sex: Male
  Weight: 6 kg

DRUGS (1)
  1. BUDESONIDE. [Suspect]
     Active Substance: BUDESONIDE
     Indication: MUSCLE SPASMS
     Route: 055
     Dates: start: 20181015, end: 20181017

REACTIONS (1)
  - Tachypnoea [Recovering/Resolving]
